FAERS Safety Report 10657222 (Version 1)
Quarter: 2014Q4

REPORT INFORMATION
  Report Type: Spontaneous
  Country: FR (occurrence: None)
  Receive Date: 20141215
  Receipt Date: 20141215
  Transmission Date: 20150529
  Serious: Yes (Hospitalization, Other)
  Sender: FDA-Public Use
  Company Number: FR-ZYDUS-005960

PATIENT
  Age: 76 Year
  Sex: Male

DRUGS (7)
  1. CLOPIDOGREL [Suspect]
     Active Substance: CLOPIDOGREL BISULFATE
     Indication: PRODUCT USED FOR UNKNOWN INDICATION
     Route: 048
     Dates: end: 201410
  2. MODOPAR (MODOPAR) [Concomitant]
  3. METFORMIN [Suspect]
     Active Substance: METFORMIN HYDROCHLORIDE
     Indication: PRODUCT USED FOR UNKNOWN INDICATION
     Route: 048
     Dates: end: 201306
  4. AVODART (AVODART) [Concomitant]
  5. CANDESARTAN (CANDESARTAN) [Suspect]
     Active Substance: CANDESARTAN
     Indication: PRODUCT USED FOR UNKNOWN INDICATION
     Route: 048
  6. TRIVASTAL (TRIVASTAL) [Concomitant]
  7. ALLOPURINOL (ALLOPURINOL) [Concomitant]
     Active Substance: ALLOPURINOL

REACTIONS (4)
  - Weight decreased [None]
  - Bronchiectasis [None]
  - Interstitial lung disease [None]
  - General physical health deterioration [None]

NARRATIVE: CASE EVENT DATE: 201410
